FAERS Safety Report 17443550 (Version 2)
Quarter: 2024Q2

REPORT INFORMATION
  Report Type: Other
  Country: CO (occurrence: None)
  Receive Date: 20200221
  Receipt Date: 20240530
  Transmission Date: 20240715
  Serious: Yes (Hospitalization, Other)
  Sender: FDA-Public Use
  Company Number: CO-ROCHE-2494267

PATIENT
  Sex: Female

DRUGS (1)
  1. MABTHERA [Suspect]
     Active Substance: RITUXIMAB
     Indication: Product used for unknown indication
     Route: 065

REACTIONS (11)
  - Gastrointestinal infection [Unknown]
  - Urinary tract infection [Unknown]
  - Haematological infection [Unknown]
  - Cardiac failure [Unknown]
  - Renal failure [Unknown]
  - Weight decreased [Unknown]
  - Abdominal discomfort [Unknown]
  - Vomiting [Unknown]
  - Gastritis [Unknown]
  - Bone pain [Unknown]
  - Osteoporosis [Unknown]
